FAERS Safety Report 5254295-5 (Version None)
Quarter: 2007Q1

REPORT INFORMATION
  Report Type: 
  Country: None (occurrence: None)
  Receive Date: 20070302
  Receipt Date: 20070223
  Transmission Date: 20070707
  Serious: Yes (Other)
  Sender: FDA-Public Use
  Company Number: GB-GLAXOSMITHKLINE-B0460377A

PATIENT
  Age: 12 Year
  Sex: Male
  Weight: 59.3 kg

DRUGS (6)
  1. RANITIDINE [Suspect]
     Route: 042
     Dates: start: 20070131, end: 20070201
  2. AMOXICILLIN + CLAVULANATE POTASSIUM [Concomitant]
     Indication: PROPHYLAXIS
     Dosage: 1.2G THREE TIMES PER DAY
     Route: 042
     Dates: start: 20070131
  3. GABAPENTIN [Concomitant]
     Indication: EPILEPSY
     Dosage: 600MG THREE TIMES PER DAY
  4. GAVISCON [Concomitant]
  5. MOVICOL [Concomitant]
  6. TEGRETOL [Concomitant]
     Indication: EPILEPSY
     Dosage: 25MG TWICE PER DAY

REACTIONS (3)
  - ERYTHEMA [None]
  - PRURITUS [None]
  - URTICARIA [None]
